FAERS Safety Report 6018693-4 (Version None)
Quarter: 2008Q4

REPORT INFORMATION
  Report Type: 
  Country: None (occurrence: None)
  Receive Date: 20081223
  Receipt Date: 20081219
  Transmission Date: 20090506
  Serious: Yes (Hospitalization)
  Sender: FDA-Public Use
  Company Number: FR-GILEAD-2008-0019481

PATIENT
  Sex: Male

DRUGS (29)
  1. TRUVADA [Suspect]
     Indication: HEPATITIS B VIRUS TEST
     Route: 048
     Dates: start: 20081007, end: 20081118
  2. VIRAMUNE [Concomitant]
     Indication: HIV INFECTION
     Route: 046
     Dates: start: 20081007, end: 20081118
  3. KARDEGIC [Concomitant]
     Indication: HYPERTENSION
  4. KARDEGIC [Concomitant]
     Indication: ISCHAEMIC CARDIOMYOPATHY
  5. PLAVIX [Concomitant]
     Indication: HYPERTENSION
  6. PLAVIX [Concomitant]
     Indication: ISCHAEMIC CARDIOMYOPATHY
  7. CARVEDILOL [Concomitant]
     Indication: HYPERTENSION
  8. CARVEDILOL [Concomitant]
     Indication: ISCHAEMIC CARDIOMYOPATHY
  9. FLUDEX [Concomitant]
     Indication: HYPERTENSION
  10. FLUDEX [Concomitant]
     Indication: ISCHAEMIC CARDIOMYOPATHY
  11. LOXEN [Concomitant]
     Indication: HYPERTENSION
  12. LOXEN [Concomitant]
     Indication: ISCHAEMIC CARDIOMYOPATHY
  13. MEDIATENSYL [Concomitant]
     Indication: HYPERTENSION
  14. MEDIATENSYL [Concomitant]
     Indication: ISCHAEMIC CARDIOMYOPATHY
  15. TRIATEC [Concomitant]
     Indication: HYPERTENSION
     Dates: end: 20081120
  16. TRIATEC [Concomitant]
     Indication: ISCHAEMIC CARDIOMYOPATHY
  17. HYPERIUM [Concomitant]
     Indication: HYPERTENSION
  18. HYPERIUM [Concomitant]
     Indication: ISCHAEMIC CARDIOMYOPATHY
  19. TAMSULOSINE [Concomitant]
     Indication: BENIGN PROSTATIC HYPERPLASIA
  20. LYRICA [Concomitant]
     Indication: NEURALGIA
  21. MYSOLINE [Concomitant]
     Indication: NEURALGIA
  22. OMEPRAZOLE [Concomitant]
     Indication: GASTRITIS
  23. DIAMICRON [Concomitant]
     Indication: DIABETES MELLITUS
     Dates: end: 20081120
  24. DIAMICRON [Concomitant]
     Indication: HYPERCHOLESTEROLAEMIA
  25. EZETROL [Concomitant]
     Indication: DIABETES MELLITUS
  26. EZETROL [Concomitant]
     Indication: HYPERCHOLESTEROLAEMIA
  27. PREDNISOLONE [Concomitant]
     Dates: start: 20081010
  28. AERIUS [Concomitant]
     Dates: start: 20081008
  29. PYOSTACINE [Concomitant]
     Dates: start: 20081008

REACTIONS (2)
  - DRUG RASH WITH EOSINOPHILIA AND SYSTEMIC SYMPTOMS [None]
  - EOSINOPHILIA [None]
